FAERS Safety Report 5761235-9 (Version None)
Quarter: 2008Q2

REPORT INFORMATION
  Report Type: 
  Country: None (occurrence: None)
  Receive Date: 20080606
  Receipt Date: 20080602
  Transmission Date: 20081010
  Serious: Yes (Other)
  Sender: FDA-Public Use
  Company Number: PHBS2006PT07381

PATIENT
  Sex: Male

DRUGS (5)
  1. ZOMETA [Suspect]
     Dosage: 4 MG, QMO
     Dates: start: 20020901, end: 20051115
  2. THALIDOMIDE [Concomitant]
     Dosage: 100MG/DAY
     Dates: start: 20020319
  3. CLARITHROMYCIN [Concomitant]
     Dosage: 50MG/DAY
     Route: 048
     Dates: start: 20030301
  4. ISOSORBIDE DINITRATE [Concomitant]
     Dosage: 20MG/DAY
     Route: 048
     Dates: start: 20040301
  5. OFLOXACIN [Concomitant]
     Dosage: FOR 7 DAYS
     Dates: start: 20050701

REACTIONS (5)
  - BONE DEBRIDEMENT [None]
  - INCISIONAL DRAINAGE [None]
  - OSTEOMYELITIS [None]
  - OSTEONECROSIS [None]
  - PYOGENIC GRANULOMA [None]
